FAERS Safety Report 15926955 (Version 2)
Quarter: 2019Q1

REPORT INFORMATION
  Report Type: Spontaneous
  Country: US (occurrence: US)
  Receive Date: 20190205
  Receipt Date: 20190219
  Transmission Date: 20190417
  Serious: No
  Sender: FDA-Public Use
  Company Number: US-ALLERGAN-1852500US

PATIENT
  Age: 29 Year
  Sex: Female
  Weight: 55.8 kg

DRUGS (4)
  1. UNSPECIFIED ALLERGY MEDICATION [Concomitant]
     Active Substance: UNSPECIFIED INGREDIENT
     Indication: HYPERSENSITIVITY
  2. XANAX [Concomitant]
     Active Substance: ALPRAZOLAM
     Indication: ANXIETY
  3. VITAMINS [Concomitant]
     Active Substance: VITAMINS
  4. BOTOX [Suspect]
     Active Substance: ONABOTULINUMTOXINA
     Indication: VESTIBULAR MIGRAINE
     Dosage: 200 UNITS, SINGLE
     Route: 030
     Dates: start: 20181011, end: 20181011

REACTIONS (7)
  - Off label use [Unknown]
  - Muscular weakness [Not Recovered/Not Resolved]
  - Binocular eye movement disorder [Not Recovered/Not Resolved]
  - Dizziness [Not Recovered/Not Resolved]
  - Gait disturbance [Not Recovered/Not Resolved]
  - Dry eye [Not Recovered/Not Resolved]
  - Brow ptosis [Not Recovered/Not Resolved]

NARRATIVE: CASE EVENT DATE: 20181011
